FAERS Safety Report 10509023 (Version 1)
Quarter: 2014Q4

REPORT INFORMATION
  Report Type: Spontaneous
  Country: US (occurrence: US)
  Receive Date: 20141009
  Receipt Date: 20141009
  Transmission Date: 20150528
  Serious: Yes (Other)
  Sender: FDA-Public Use
  Company Number: US-PFIZER INC-2014276596

PATIENT
  Sex: Female

DRUGS (1)
  1. LYRICA [Suspect]
     Active Substance: PREGABALIN
     Dosage: UNK

REACTIONS (6)
  - Nerve injury [Unknown]
  - Glucose tolerance impaired [Unknown]
  - Fibromyalgia [Unknown]
  - Angina pectoris [Unknown]
  - Autonomic nervous system imbalance [Unknown]
  - Blood cholesterol abnormal [Unknown]
